FAERS Safety Report 23422619 (Version 2)
Quarter: 2024Q1

REPORT INFORMATION
  Report Type: Spontaneous
  Country: US (occurrence: US)
  Receive Date: 20240119
  Receipt Date: 20240131
  Transmission Date: 20240409
  Serious: No
  Sender: FDA-Public Use
  Company Number: US-MYLANLABS-2024M1003127

PATIENT
  Age: 81 Year
  Sex: Female
  Weight: 63.05 kg

DRUGS (1)
  1. TYRVAYA [Suspect]
     Active Substance: VARENICLINE TARTRATE
     Indication: Product used for unknown indication
     Dosage: UNK (2X DAY, 12 HRS APART)
     Route: 045
     Dates: start: 20230223

REACTIONS (4)
  - Rhinalgia [Unknown]
  - Nasal discomfort [Unknown]
  - Sneezing [Unknown]
  - Epistaxis [Unknown]

NARRATIVE: CASE EVENT DATE: 20231101
